FAERS Safety Report 5192093-1 (Version None)
Quarter: 2006Q4

REPORT INFORMATION
  Report Type: 
  Country: None (occurrence: None)
  Receive Date: 20061221
  Receipt Date: 20061221
  Transmission Date: 20070319
  Serious: Yes (Other)
  Sender: FDA-Public Use
  Company Number: None

PATIENT
  Age: 85 Year
  Sex: Male
  Weight: 65.1 kg

DRUGS (1)
  1. FLUOXETINE [Suspect]

REACTIONS (2)
  - DELIRIUM [None]
  - HYPONATRAEMIA [None]
